FAERS Safety Report 14133061 (Version 1)
Quarter: 2017Q4

REPORT INFORMATION
  Report Type: Spontaneous
  Country: US (occurrence: US)
  Receive Date: 20171026
  Receipt Date: 20171026
  Transmission Date: 20180321
  Serious: No
  Sender: FDA-Public Use
  Company Number: None

PATIENT
  Age: 56 Year
  Sex: Female
  Weight: 54 kg

DRUGS (3)
  1. CEFTRIAXONE. [Suspect]
     Active Substance: CEFTRIAXONE
     Indication: KIDNEY INFECTION
     Dosage: OTHER FREQUENCY:ONE INJECTION;?
     Route: 030
     Dates: start: 20171011
  2. CEFTRIAXONE. [Suspect]
     Active Substance: CEFTRIAXONE
     Indication: CYSTITIS
     Dosage: OTHER FREQUENCY:ONE INJECTION;?
     Route: 030
     Dates: start: 20171011
  3. PROBIOTIC [Concomitant]
     Active Substance: PROBIOTICS NOS

REACTIONS (1)
  - Injection site pain [None]

NARRATIVE: CASE EVENT DATE: 20171011
